FAERS Safety Report 5622280-7 (Version None)
Quarter: 2008Q1

REPORT INFORMATION
  Report Type: 
  Country: None (occurrence: None)
  Receive Date: 20080114
  Receipt Date: 20070920
  Transmission Date: 20080703
  Serious: Yes (Death, Hospitalization)
  Sender: FDA-Public Use
  Company Number: A03200705717

PATIENT
  Age: 80 Year
  Sex: Female

DRUGS (3)
  1. PLAVIX [Suspect]
     Dosage: 75 MG QOD - ORAL
     Route: 048
  2. LOVENOX - HEPARIN-FRACTION, SODIUM SALT - SOLUTION - UNIT DOSE : UNKNO [Suspect]
     Dosage: SUBCUTANEOUS
     Route: 058
     Dates: start: 20070517
  3. COUMADIN [Suspect]
     Dosage: ORAL
     Route: 048
     Dates: start: 20070517

REACTIONS (4)
  - ABDOMINAL PAIN [None]
  - CONTUSION [None]
  - HAEMATOMA [None]
  - HAEMORRHAGE [None]
